FAERS Safety Report 10056924 (Version 2)
Quarter: 2014Q2

REPORT INFORMATION
  Report Type: Spontaneous
  Country: US (occurrence: US)
  Receive Date: 20140403
  Receipt Date: 20140418
  Transmission Date: 20141212
  Serious: Yes (Death)
  Sender: FDA-Public Use
  Company Number: US-009507513-1403USA014176

PATIENT
  Sex: Female

DRUGS (2)
  1. PEGINTRON [Suspect]
     Indication: HEPATITIS C
     Dosage: INJECTION, REDIPEN
     Dates: end: 201309
  2. REBETOL [Suspect]
     Dosage: UNK
     Route: 048
     Dates: end: 201309

REACTIONS (3)
  - Death [Fatal]
  - Swelling [Not Recovered/Not Resolved]
  - Product quality issue [Unknown]
